FAERS Safety Report 16007590 (Version 1)
Quarter: 2019Q1

REPORT INFORMATION
  Report Type: Spontaneous
  Country: US (occurrence: US)
  Receive Date: 20190226
  Receipt Date: 20190226
  Transmission Date: 20190418
  Serious: No
  Sender: FDA-Public Use
  Company Number: US-PERRIGO-18US010296

PATIENT
  Age: 57 Year
  Sex: Male
  Weight: 90.7 kg

DRUGS (5)
  1. NAPROXEN SODIUM. [Suspect]
     Active Substance: NAPROXEN SODIUM
     Indication: BACK PAIN
     Dosage: 440 MG, BID
     Route: 048
     Dates: start: 201809, end: 201809
  2. NAPROXEN SODIUM. [Suspect]
     Active Substance: NAPROXEN SODIUM
     Indication: ARTHRALGIA
     Dosage: 880 MG, SINGLE
     Route: 048
     Dates: start: 201809, end: 201809
  3. MELOXICAM. [Concomitant]
     Active Substance: MELOXICAM
     Indication: PAIN
     Dosage: UNK
     Route: 048
     Dates: start: 20180704
  4. NAPROXEN SODIUM. [Suspect]
     Active Substance: NAPROXEN SODIUM
     Dosage: 440 MG, SINGLE
     Route: 048
     Dates: start: 20180926, end: 20180926
  5. ANTIHYPERTENSIVES [Concomitant]
     Active Substance: UNSPECIFIED INGREDIENT
     Indication: HYPERTENSION
     Dosage: UNK
     Route: 048
     Dates: start: 20180704

REACTIONS (3)
  - Drug ineffective [Unknown]
  - Drug effect incomplete [Unknown]
  - Incorrect dose administered [Recovered/Resolved]

NARRATIVE: CASE EVENT DATE: 201809
